FAERS Safety Report 20714258 (Version 2)
Quarter: 2022Q2

REPORT INFORMATION
  Report Type: Spontaneous
  Country: US (occurrence: US)
  Receive Date: 20220415
  Receipt Date: 20220524
  Transmission Date: 20220721
  Serious: No
  Sender: FDA-Public Use
  Company Number: US-PFIZER INC-202200455288

PATIENT
  Age: 60 Year
  Sex: Male

DRUGS (2)
  1. XELJANZ [Suspect]
     Active Substance: TOFACITINIB CITRATE
     Indication: Rheumatoid arthritis
     Dosage: 5 MG, 2X/DAY
     Route: 048
     Dates: start: 20220312
  2. XELJANZ [Suspect]
     Active Substance: TOFACITINIB CITRATE
     Indication: Colitis ulcerative

REACTIONS (7)
  - Off label use [Unknown]
  - Therapeutic product effect incomplete [Recovering/Resolving]
  - Blood cholesterol increased [Unknown]
  - Frequent bowel movements [Unknown]
  - Bowel movement irregularity [Unknown]
  - Infrequent bowel movements [Unknown]
  - Sleep disorder [Unknown]
